FAERS Safety Report 23443592 (Version 1)
Quarter: 2024Q1

REPORT INFORMATION
  Report Type: Spontaneous
  Country: US (occurrence: US)
  Receive Date: 20240125
  Receipt Date: 20240125
  Transmission Date: 20240409
  Serious: No
  Sender: FDA-Public Use
  Company Number: US-PFIZER INC-202400023284

PATIENT
  Age: 46 Year
  Sex: Female

DRUGS (2)
  1. LITFULO [Suspect]
     Active Substance: RITLECITINIB TOSYLATE
     Indication: Alopecia areata
     Dosage: 1 CAPSULE BY MOUTH DAILY
     Route: 048
  2. TOFACITINIB CITRATE [Suspect]
     Active Substance: TOFACITINIB CITRATE
     Indication: Seborrhoeic dermatitis
     Dosage: TOFACITINIB 2% CREAM APPLYBID  (TWICE A DAY) ON WEEKDAYS TO AFFECTED AREA

REACTIONS (5)
  - Condition aggravated [Unknown]
  - Product prescribing error [Unknown]
  - Product use issue [Unknown]
  - Off label use [Unknown]
  - Product preparation error [Unknown]
